FAERS Safety Report 12676600 (Version 1)
Quarter: 2016Q3

REPORT INFORMATION
  Report Type: Spontaneous
  Country: US (occurrence: US)
  Receive Date: 20160823
  Receipt Date: 20160823
  Transmission Date: 20161109
  Serious: No
  Sender: FDA-Public Use
  Company Number: US-PFIZER INC-2016396298

PATIENT
  Sex: Male

DRUGS (1)
  1. GABAPENTIN. [Suspect]
     Active Substance: GABAPENTIN
     Dosage: TAKE 3, EVERY MORNING, EVERY AFTERNOON AND EVERY EVENING

REACTIONS (3)
  - Hypoaesthesia [Unknown]
  - Pain [Unknown]
  - Peripheral swelling [Unknown]
